FAERS Safety Report 8978495 (Version 3)
Quarter: 2013Q3

REPORT INFORMATION
  Report Type: Spontaneous
  Country: US (occurrence: US)
  Receive Date: 20121221
  Receipt Date: 20130920
  Transmission Date: 20140515
  Serious: Yes (Hospitalization)
  Sender: FDA-Public Use
  Company Number: US-BIOGENIDEC-2012BI062020

PATIENT
  Age: 56 Year
  Sex: Female
  Weight: 70 kg

DRUGS (40)
  1. AVONEX [Suspect]
     Indication: MULTIPLE SCLEROSIS
     Route: 030
     Dates: start: 19970601, end: 2003
  2. AVONEX [Suspect]
     Indication: MULTIPLE SCLEROSIS
     Route: 030
     Dates: start: 2003
  3. SYNTHROID [Concomitant]
  4. GABAPENTIN [Concomitant]
     Indication: MUSCLE SPASMS
     Route: 048
  5. ESTRADIOL [Concomitant]
     Route: 048
  6. HYDROCHLOROTHIAZIDE [Concomitant]
     Route: 048
  7. CARAFATE [Concomitant]
  8. COLACE [Concomitant]
     Route: 048
  9. MELOXICAM [Concomitant]
     Route: 048
  10. PATANOL [Concomitant]
  11. DETROL [Concomitant]
     Route: 048
  12. BEE POLLEN [Concomitant]
     Route: 048
  13. FISH OIL [Concomitant]
     Route: 048
  14. DEXILANT [Concomitant]
     Route: 048
  15. HYDROCODONE [Concomitant]
     Indication: PAIN
     Route: 048
  16. ACETAMINOPHEN [Concomitant]
     Indication: PAIN
     Route: 048
  17. FIONASE [Concomitant]
  18. INSULIN [Concomitant]
     Route: 048
  19. BILBERRY [Concomitant]
     Route: 048
  20. CITALOPRAM [Concomitant]
     Route: 048
  21. SIMVASTATIN [Concomitant]
     Route: 048
  22. PIRIMIDONE [Concomitant]
     Route: 048
  23. GARLIC [Concomitant]
     Route: 048
  24. MILK THISTLE [Concomitant]
     Route: 048
  25. IBUPROFEN [Concomitant]
     Route: 048
  26. FOLIC ACID [Concomitant]
     Route: 048
  27. ZYRTEC [Concomitant]
     Route: 048
  28. PROAIR HFA [Concomitant]
  29. LISINOPRIL [Concomitant]
     Route: 048
  30. WOMEN^S FORMULA [Concomitant]
  31. CALCIUM [Concomitant]
     Route: 048
  32. SEROQUEL [Concomitant]
  33. TEGRETOL XR [Concomitant]
     Indication: EPILEPSY
  34. KEPPRA [Concomitant]
     Indication: EPILEPSY
  35. LORATIDINE [Concomitant]
     Indication: ASTHMA
  36. FLUTICASONE [Concomitant]
     Indication: ASTHMA
  37. OMEPRAZOLE [Concomitant]
     Indication: BARRETT^S OESOPHAGUS
  38. TYLENOL [Concomitant]
     Indication: BACK PAIN
  39. METHOTREXATE SODIUM [Concomitant]
     Indication: RHEUMATOID ARTHRITIS
     Route: 048
  40. SINGULAR [Concomitant]
     Indication: ASTHMA

REACTIONS (14)
  - Urinary tract infection [Recovered/Resolved]
  - Renal failure acute [Recovered/Resolved]
  - Hypertension [Unknown]
  - Toxic encephalopathy [Recovered/Resolved]
  - Depressed level of consciousness [Recovered/Resolved]
  - Cardiac disorder [Recovered/Resolved]
  - Loss of consciousness [Recovered/Resolved]
  - Convulsion [Recovered/Resolved]
  - Confusional state [Recovered/Resolved]
  - Angiopathy [Unknown]
  - Memory impairment [Unknown]
  - Fall [Recovered/Resolved]
  - Pain in extremity [Unknown]
  - Muscle spasms [Recovered/Resolved]
